FAERS Safety Report 24948171 (Version 1)
Quarter: 2025Q1

REPORT INFORMATION
  Report Type: Spontaneous
  Country: NL (occurrence: NL)
  Receive Date: 20250210
  Receipt Date: 20250210
  Transmission Date: 20250408
  Serious: Yes (Death)
  Sender: BOEHRINGER INGELHEIM
  Company Number: None

PATIENT
  Age: 78 Year
  Sex: Male
  Weight: 94 kg

DRUGS (12)
  1. EMPAGLIFLOZIN [Suspect]
     Active Substance: EMPAGLIFLOZIN
     Indication: Product used for unknown indication
     Dosage: 1 KEER PER DAG 1 STUK
     Dates: start: 20230715, end: 20230723
  2. EPLERENONE [Suspect]
     Active Substance: EPLERENONE
     Indication: Product used for unknown indication
  3. FUROSEMIDE [Suspect]
     Active Substance: FUROSEMIDE
     Indication: Product used for unknown indication
  4. ACENOCOUMAROL TABLET 4MG / Brand name not specified [Concomitant]
     Indication: Product used for unknown indication
  5. CLOPIDOGREL BISULFATE [Concomitant]
     Active Substance: CLOPIDOGREL BISULFATE
     Indication: Product used for unknown indication
  6. ROSUVASTATINE TABLET 20MG / Brand name not specified [Concomitant]
     Indication: Product used for unknown indication
  7. PERINDOPRIL TABLET 8MG (ERBUMINE) / Brand name not specified [Concomitant]
     Indication: Product used for unknown indication
  8. PANTOPRAZOLE [Concomitant]
     Active Substance: PANTOPRAZOLE
     Indication: Product used for unknown indication
  9. NITROGLYCERINE SPRAY SUBLING. 0,4MG/DO / Brand name not specified [Concomitant]
     Indication: Product used for unknown indication
  10. GLICLAZIDE TABLET MGA 30MG / Brand name not specified [Concomitant]
     Indication: Product used for unknown indication
  11. ISOSORBIDEMONONITRAAT CAPSULE MGA  50MG / Brand name not specified [Concomitant]
     Indication: Product used for unknown indication
  12. NIFEDIPINE [Concomitant]
     Active Substance: NIFEDIPINE
     Indication: Product used for unknown indication

REACTIONS (3)
  - Diabetic ketoacidosis [Fatal]
  - Hypovolaemia [Fatal]
  - Lactic acidosis [Fatal]
